FAERS Safety Report 20190001 (Version 1)
Quarter: 2021Q4

REPORT INFORMATION
  Report Type: Report from Study
  Country: US (occurrence: US)
  Receive Date: 20211215
  Receipt Date: 20211215
  Transmission Date: 20220303
  Serious: Yes (Other)
  Sender: FDA-Public Use
  Company Number: US-PFIZER INC-202101723846

PATIENT
  Age: 60 Year
  Sex: Male
  Weight: 93 kg

DRUGS (4)
  1. TALAZOPARIB [Suspect]
     Active Substance: TALAZOPARIB
     Indication: Prostate cancer
     Dosage: 1 MG, QD DAYS 1-6 EACH CYCLE
     Dates: start: 20210819
  2. TEMOZOLOMIDE [Suspect]
     Active Substance: TEMOZOLOMIDE
     Indication: Prostate cancer
     Dosage: 75 MG/M2, QD DAYS 2-8 EACH CYCLE
     Dates: start: 20210820
  3. PEGFILGRASTIM-JMDB [Concomitant]
     Active Substance: PEGFILGRASTIM-JMDB
     Dosage: UNK
     Dates: start: 20210928
  4. ASPIRIN [Concomitant]
     Active Substance: ASPIRIN
     Dosage: UNK
     Dates: start: 20211013

REACTIONS (2)
  - Pancytopenia [Recovering/Resolving]
  - Platelet count decreased [Recovering/Resolving]

NARRATIVE: CASE EVENT DATE: 20211202
